FAERS Safety Report 18002406 (Version 3)
Quarter: 2020Q3

REPORT INFORMATION
  Report Type: Spontaneous
  Country: JP (occurrence: JP)
  Receive Date: 20200709
  Receipt Date: 20200910
  Transmission Date: 20201103
  Serious: Yes (Death, Life-Threatening, Hospitalization)
  Sender: FDA-Public Use
  Company Number: JP-MYLANLABS-2020M1062369

PATIENT
  Age: 68 Year
  Sex: Female

DRUGS (5)
  1. AZULFIDINE EN?TABS [Concomitant]
     Active Substance: SULFASALAZINE
     Indication: RHEUMATOID ARTHRITIS
     Dosage: UNK
     Route: 065
     Dates: end: 20180930
  2. XELJANZ [Concomitant]
     Active Substance: TOFACITINIB CITRATE
     Indication: RHEUMATOID ARTHRITIS
     Dosage: UNK UNK, BID
     Route: 048
     Dates: start: 20170301, end: 20180930
  3. PREDNISOLONE. [Suspect]
     Active Substance: PREDNISOLONE
     Indication: RHEUMATOID ARTHRITIS
     Dosage: 3 MILLIGRAM, QD
     Route: 065
     Dates: end: 20180930
  4. XELJANZ [Concomitant]
     Active Substance: TOFACITINIB CITRATE
     Dosage: UNK UNK, BID
     Route: 048
     Dates: start: 20181107
  5. METHOTREXATE. [Concomitant]
     Active Substance: METHOTREXATE
     Indication: RHEUMATOID ARTHRITIS
     Dosage: 10 MILLIGRAM, QW
     Route: 065
     Dates: start: 20070405, end: 20180930

REACTIONS (2)
  - Pancreatic carcinoma [Fatal]
  - No adverse event [Unknown]

NARRATIVE: CASE EVENT DATE: 201809
